FAERS Safety Report 17226580 (Version 1)
Quarter: 2020Q1

REPORT INFORMATION
  Report Type: Spontaneous
  Country: NL (occurrence: NL)
  Receive Date: 20200102
  Receipt Date: 20200102
  Transmission Date: 20200409
  Serious: Yes (Other)
  Sender: FDA-Public Use
  Company Number: NL-JAZZ-2019-NL-018291

PATIENT
  Sex: Female

DRUGS (5)
  1. XYREM [Suspect]
     Active Substance: SODIUM OXYBATE
     Indication: WITHDRAWAL SYNDROME
     Dosage: 1050 MG
     Route: 065
  2. XYREM [Suspect]
     Active Substance: SODIUM OXYBATE
     Dosage: 1950 MG EVERY 02 HOURS
     Route: 065
  3. DIAZEPAM. [Concomitant]
     Active Substance: DIAZEPAM
     Indication: WITHDRAWAL SYNDROME
     Route: 048
  4. MIRTAZAPINE. [Concomitant]
     Active Substance: MIRTAZAPINE
     Indication: INSOMNIA
  5. XYREM [Suspect]
     Active Substance: SODIUM OXYBATE
     Dosage: TAPERING-OFF AT 300 MILLIGRAM AT A TIME
     Route: 065

REACTIONS (3)
  - Off label use [Unknown]
  - Pre-eclampsia [Unknown]
  - Exposure during pregnancy [Unknown]
